FAERS Safety Report 19165899 (Version 1)
Quarter: 2021Q2

REPORT INFORMATION
  Report Type: Spontaneous
  Country: DE (occurrence: DE)
  Receive Date: 20210422
  Receipt Date: 20210422
  Transmission Date: 20210717
  Serious: Yes (Hospitalization, Other)
  Sender: FDA-Public Use
  Company Number: DE-ASTRAZENECA-2021A300554

PATIENT
  Sex: Male

DRUGS (12)
  1. AMLODIPIN [Concomitant]
     Active Substance: AMLODIPINE BESYLATE
     Dosage: 1?0?0?0
  2. MOLSIDOMIN RET [Concomitant]
     Dosage: 1?1?1?1
  3. TORASEMID [Concomitant]
     Active Substance: TORSEMIDE
     Dosage: 1?1?0?0
  4. CARVEDILOL. [Concomitant]
     Active Substance: CARVEDILOL
     Dosage: 1?0?1?0
  5. TAMSULOSIN [Concomitant]
     Active Substance: TAMSULOSIN
     Dosage: 1?0?0?0
  6. ENTRESTO [Concomitant]
     Active Substance: SACUBITRIL\VALSARTAN
     Dosage: 1?0?0?0
  7. DEKRISTOL [Concomitant]
     Active Substance: CHOLECALCIFEROL
     Dosage: ONCE WEEKLY IN THE MORNING
  8. FORXIGA [Suspect]
     Active Substance: DAPAGLIFLOZIN
     Dosage: ???????2021
     Route: 048
  9. MARCUMAR [Concomitant]
     Active Substance: PHENPROCOUMON
  10. ATORVASTATIN [Concomitant]
     Active Substance: ATORVASTATIN
     Dosage: 0?0?0.5?0
  11. LANTUS [Concomitant]
     Active Substance: INSULIN GLARGINE
     Dosage: 14 INSULIN UNITS IN THE EVENING
  12. AMIODARAN [Concomitant]
     Dosage: 1?0?0?0

REACTIONS (6)
  - Hypovolaemia [Unknown]
  - Intentional product misuse [Unknown]
  - Loss of personal independence in daily activities [Unknown]
  - Pollakiuria [Unknown]
  - Weight decreased [Unknown]
  - Urinary tract infection [Unknown]

NARRATIVE: CASE EVENT DATE: 202011
